FAERS Safety Report 7245367-4 (Version None)
Quarter: 2011Q1

REPORT INFORMATION
  Report Type: 
  Country: None (occurrence: None)
  Receive Date: 20110126
  Receipt Date: 20110119
  Transmission Date: 20110831
  Serious: Yes (Other)
  Sender: FDA-Public Use
  Company Number: US-AMGEN-USASP2010005511

PATIENT
  Age: 57 Year
  Sex: Female
  Weight: 86.168 kg

DRUGS (3)
  1. CYMBALTA [Suspect]
  2. GOLIMUMAB [Concomitant]
  3. ENBREL [Suspect]
     Indication: RHEUMATOID ARTHRITIS
     Dosage: 50 MG, QWK
     Route: 030
     Dates: start: 20061001, end: 20100501

REACTIONS (11)
  - HEADACHE [None]
  - HALLUCINATION [None]
  - PSORIATIC ARTHROPATHY [None]
  - INCORRECT ROUTE OF DRUG ADMINISTRATION [None]
  - PARAESTHESIA [None]
  - CONVULSION [None]
  - MIGRAINE [None]
  - HYPOAESTHESIA [None]
  - BONE PAIN [None]
  - GASTROINTESTINAL DISORDER [None]
  - BLADDER DISORDER [None]
